FAERS Safety Report 11118722 (Version 1)
Quarter: 2015Q2

REPORT INFORMATION
  Report Type: Spontaneous
  Country: US (occurrence: None)
  Receive Date: 20150515
  Receipt Date: 20150515
  Transmission Date: 20150821
  Serious: Yes (Other)
  Sender: FDA-Public Use
  Company Number: None

PATIENT
  Age: 65 Year
  Sex: Female
  Weight: 48.08 kg

DRUGS (11)
  1. MAGNESIUM [Concomitant]
     Active Substance: MAGNESIUM
  2. COQ10 [Concomitant]
     Active Substance: UBIDECARENONE
  3. HORSETAIL [Concomitant]
  4. MULITI VITAMIN [Concomitant]
  5. NIACIN. [Concomitant]
     Active Substance: NIACIN
  6. ATELVIA [Suspect]
     Active Substance: RISEDRONATE SODIUM
     Indication: OSTEOPOROSIS
     Route: 048
  7. RED YEAST RICE [Concomitant]
     Active Substance: DIETARY SUPPLEMENT
  8. CALCIUM [Concomitant]
     Active Substance: CALCIUM
  9. OMEGA 3 [Concomitant]
     Active Substance: OMEGA-3 FATTY ACIDS
  10. GARLIC. [Concomitant]
     Active Substance: GARLIC
  11. GLUCOSAMINE/CHONDROITIN [Concomitant]

REACTIONS (9)
  - Sensation of foreign body [None]
  - Myalgia [None]
  - Asthenia [None]
  - Dyspepsia [None]
  - Chills [None]
  - Headache [None]
  - Influenza like illness [None]
  - Feeling abnormal [None]
  - Bone pain [None]

NARRATIVE: CASE EVENT DATE: 20150511
